FAERS Safety Report 9894002 (Version 1)
Quarter: 2014Q1

REPORT INFORMATION
  Report Type: Spontaneous
  Country: US (occurrence: US)
  Receive Date: 20140213
  Receipt Date: 20140213
  Transmission Date: 20141002
  Serious: No
  Sender: FDA-Public Use
  Company Number: US-PFIZER INC-2014037086

PATIENT
  Age: 65 Year
  Sex: Male

DRUGS (2)
  1. ADVIL PM [Suspect]
     Indication: SLEEP DISORDER
     Dosage: 400MG, DAILY (TWO TABLETS OF 200MG EACH)
     Route: 048
     Dates: start: 201402
  2. METHADONE [Concomitant]
     Dosage: UNK

REACTIONS (2)
  - False positive investigation result [Unknown]
  - Urine analysis abnormal [Unknown]
